FAERS Safety Report 9134261 (Version 1)
Quarter: 2013Q1

REPORT INFORMATION
  Report Type: Spontaneous
  Country: FI (occurrence: FI)
  Receive Date: 20130304
  Receipt Date: 20130304
  Transmission Date: 20140127
  Serious: Yes (Other)
  Sender: FDA-Public Use
  Company Number: FI-ENDO PHARMACEUTICALS INC.-VANT20120085

PATIENT
  Age: 77 Year
  Sex: Male

DRUGS (8)
  1. VANTAS [Suspect]
     Indication: PROSTATE CANCER
     Route: 058
     Dates: start: 20120724, end: 20121121
  2. ATACAND [Concomitant]
     Indication: PRODUCT USED FOR UNKNOWN INDICATION
     Route: 065
  3. BISOPROLOL [Concomitant]
     Indication: PRODUCT USED FOR UNKNOWN INDICATION
     Dosage: 5 MG
     Route: 065
  4. NORSPAN PATCH [Concomitant]
     Indication: PAIN
     Dosage: UNKNOWN
     Route: 062
  5. VI-SIBLIN [Concomitant]
     Indication: CONSTIPATION
     Dosage: UNKNOWN
     Route: 065
  6. MOVICOL [Concomitant]
     Indication: CONSTIPATION
     Dosage: UNKNOWN
     Route: 065
  7. LAXOBERON [Concomitant]
     Indication: CONSTIPATION
     Dosage: UNKNOWN
     Route: 065
  8. OXYNORM [Concomitant]
     Indication: PAIN
     Dosage: 5 MG
     Route: 065

REACTIONS (2)
  - Myalgia [Not Recovered/Not Resolved]
  - Arthralgia [Not Recovered/Not Resolved]
